FAERS Safety Report 6101105-X (Version None)
Quarter: 2009Q1

REPORT INFORMATION
  Report Type: 
  Country: None (occurrence: None)
  Receive Date: 20090227
  Receipt Date: 20090219
  Transmission Date: 20090719
  Serious: Yes (Hospitalization)
  Sender: FDA-Public Use
  Company Number: KF200900209

PATIENT
  Age: 40 Year
  Sex: Female

DRUGS (7)
  1. ISOSORBIDE MONONITRATE [Suspect]
     Indication: CARDIAC DISORDER
     Dosage: 60 MG QD, ORAL
     Route: 048
     Dates: start: 20040101, end: 20081201
  2. LASIX [Concomitant]
  3. POTASSIUM CHLORIDE [Concomitant]
  4. METOPROLOL TARTRATE [Concomitant]
  5. AMLOPIDINE (AMLOPIDINE) [Concomitant]
  6. ASPIRIN [Concomitant]
  7. LEVOTHYROXINE SODIUM [Concomitant]

REACTIONS (8)
  - ARTERIAL OCCLUSIVE DISEASE [None]
  - ASTHENIA [None]
  - CHEST PAIN [None]
  - DYSPNOEA [None]
  - FATIGUE [None]
  - HEART RATE INCREASED [None]
  - PRODUCT QUALITY ISSUE [None]
  - SYNCOPE [None]
